FAERS Safety Report 8713625 (Version 2)
Quarter: 2012Q4

REPORT INFORMATION
  Report Type: 
  Country: US (occurrence: US)
  Receive Date: 20120808
  Receipt Date: 20121015
  Transmission Date: 20130627
  Serious: No
  Sender: FDA-Public Use
  Company Number: US-ELI_LILLY_AND_COMPANY-US201208000374

PATIENT
  Sex: Female
  Weight: 113.38 kg

DRUGS (11)
  1. ADCIRCA [Suspect]
     Dosage: 20 mg, other
     Dates: start: 20120626, end: 20120724
  2. ECOTRIN [Concomitant]
     Dosage: 325 mg, qd
     Route: 065
  3. COREG [Concomitant]
     Dosage: 12.5 mg, bid
     Route: 065
  4. PREDNISONE [Concomitant]
     Dosage: 5 mg, unknown
     Route: 065
  5. CELEXA [Concomitant]
     Dosage: 20 mg, unknown
     Route: 065
  6. VITAMIN D3 [Concomitant]
     Dosage: 400 u, unknown
     Route: 065
  7. VITAMIN C [Concomitant]
     Dosage: 500 mg, unknown
     Route: 065
  8. LISINOPRIL [Concomitant]
     Dosage: 7.5 mg, bid
     Route: 065
  9. NEPHROCAPS [Concomitant]
     Dosage: UNK, qd
     Route: 065
  10. METANX [Concomitant]
  11. PROTONIX [Concomitant]
     Dosage: 40 mg, unknown
     Route: 065

REACTIONS (2)
  - Arteriovenous fistula site complication [Unknown]
  - Off label use [Unknown]
